FAERS Safety Report 19358617 (Version 1)
Quarter: 2021Q2

REPORT INFORMATION
  Report Type: Spontaneous
  Country: US (occurrence: US)
  Receive Date: 20210602
  Receipt Date: 20210602
  Transmission Date: 20210717
  Serious: Yes (Hospitalization)
  Sender: FDA-Public Use
  Company Number: None

PATIENT
  Age: 47 Year
  Sex: Female
  Weight: 77.3 kg

DRUGS (5)
  1. ASCORBIC ACID. [Concomitant]
     Active Substance: ASCORBIC ACID
  2. ASPIRIN. [Concomitant]
     Active Substance: ASPIRIN
  3. FLUTICASONE NASAL SPRAY [Concomitant]
     Active Substance: FLUTICASONE
  4. IRON POLYSACCHARIDE [Concomitant]
  5. FERRLECIT [Suspect]
     Active Substance: SODIUM FERRIC GLUCONATE COMPLEX
     Indication: IRON DEFICIENCY ANAEMIA
     Route: 041
     Dates: start: 20210521, end: 20210521

REACTIONS (6)
  - Hyperhidrosis [None]
  - Rash [None]
  - Speech disorder [None]
  - Syncope [None]
  - Blood pressure decreased [None]
  - Abdominal pain [None]

NARRATIVE: CASE EVENT DATE: 20210521
